FAERS Safety Report 25874104 (Version 1)
Quarter: 2025Q4

REPORT INFORMATION
  Report Type: Spontaneous
  Country: US (occurrence: US)
  Receive Date: 20251002
  Receipt Date: 20251002
  Transmission Date: 20260118
  Serious: Yes (Other)
  Sender: PFIZER
  Company Number: US-PFIZER INC-PV202500117227

PATIENT
  Age: 76 Year
  Sex: Female

DRUGS (2)
  1. IBRANCE [Suspect]
     Active Substance: PALBOCICLIB
     Dosage: ONCE DAILY FOR 21 DAYS, THEN 7 DAYS OFF
     Route: 048
  2. ALPRAZOLAM [Suspect]
     Active Substance: ALPRAZOLAM
     Dosage: HALF A TAB OF 0.5MG STRENGTH

REACTIONS (2)
  - Respiratory depression [Unknown]
  - Fatigue [Unknown]
